FAERS Safety Report 13688014 (Version 1)
Quarter: 2017Q2

REPORT INFORMATION
  Report Type: Spontaneous
  Country: US (occurrence: US)
  Receive Date: 20170626
  Receipt Date: 20170626
  Transmission Date: 20170830
  Serious: Yes (Other)
  Sender: FDA-Public Use
  Company Number: US-AMGEN-USASP2017095033

PATIENT
  Age: 67 Year
  Sex: Male

DRUGS (1)
  1. EPOGEN [Suspect]
     Active Substance: ERYTHROPOIETIN
     Indication: PRODUCT USED FOR UNKNOWN INDICATION
     Dosage: 10,000, UNK, 2 TIMES/WK
     Route: 065

REACTIONS (2)
  - Renal failure [Unknown]
  - Bone marrow failure [Unknown]
